FAERS Safety Report 9003488 (Version 3)
Quarter: 2013Q3

REPORT INFORMATION
  Report Type: Spontaneous
  Country: US (occurrence: US)
  Receive Date: 20130108
  Receipt Date: 20130811
  Transmission Date: 20140515
  Serious: Yes (Hospitalization, Disabling, Other)
  Sender: FDA-Public Use
  Company Number: US-009507513-1202USA02459

PATIENT
  Sex: Female
  Weight: 76.2 kg

DRUGS (5)
  1. FOSAMAX [Suspect]
     Indication: OSTEOPOROSIS
     Dosage: 70 MG, QW
     Route: 048
  2. FOSAMAX [Suspect]
     Dosage: 10 MG, UNK
     Route: 048
     Dates: start: 19960101, end: 20050716
  3. FOSAMAX PLUS D [Suspect]
     Dosage: 1 DF, QW
     Route: 048
  4. VITAMINS (UNSPECIFIED) [Concomitant]
     Dosage: UNK
     Dates: start: 1962
  5. ACIPHEX [Concomitant]
     Indication: GASTROOESOPHAGEAL REFLUX DISEASE
     Dosage: UNK
     Dates: start: 2000, end: 2006

REACTIONS (72)
  - Tinnitus [Unknown]
  - Increased tendency to bruise [Unknown]
  - Haematoma [Unknown]
  - Scoliosis [Unknown]
  - Arthritis [Unknown]
  - Gastric ulcer [Unknown]
  - Gastrooesophageal reflux disease [Not Recovered/Not Resolved]
  - Drug hypersensitivity [Unknown]
  - Musculoskeletal pain [Unknown]
  - Abdominal pain upper [Unknown]
  - Dizziness [Unknown]
  - Pain in extremity [Unknown]
  - Pain in extremity [Unknown]
  - Headache [Unknown]
  - Gastrooesophageal reflux disease [Unknown]
  - Gastritis [Unknown]
  - Myocardial infarction [Unknown]
  - Breast cancer recurrent [Unknown]
  - Malignant breast lump removal [Unknown]
  - Low turnover osteopathy [Not Recovered/Not Resolved]
  - Invasive ductal breast carcinoma [Unknown]
  - Radical mastectomy [Unknown]
  - Peptic ulcer [Unknown]
  - Obstruction gastric [Unknown]
  - Gastrectomy [Unknown]
  - Cholecystitis chronic [Unknown]
  - Cholelithiasis [Unknown]
  - Cholecystectomy [Unknown]
  - Fall [Unknown]
  - Incision site erythema [Recovered/Resolved]
  - Kidney infection [Unknown]
  - Femur fracture [Not Recovered/Not Resolved]
  - Rib fracture [Recovering/Resolving]
  - Vitamin D deficiency [Unknown]
  - Anaemia postoperative [Unknown]
  - Diverticulum [Unknown]
  - Helicobacter test positive [Unknown]
  - Anxiety [Unknown]
  - Depression [Unknown]
  - Urinary incontinence [Unknown]
  - Breast discomfort [Unknown]
  - Palpitations [Unknown]
  - Irritable bowel syndrome [Unknown]
  - Otitis media [Unknown]
  - Animal bite [Unknown]
  - Cellulitis [Unknown]
  - Chest X-ray abnormal [Unknown]
  - Hiatus hernia [Unknown]
  - Osteoarthritis [Unknown]
  - Periodontal disease [Unknown]
  - Toothache [Unknown]
  - Gingival pain [Unknown]
  - Jaw disorder [Unknown]
  - Gingival disorder [Unknown]
  - Tooth fracture [Unknown]
  - Gingival bleeding [Unknown]
  - Tooth fracture [Unknown]
  - Tooth fracture [Unknown]
  - Sensitivity of teeth [Unknown]
  - Temporomandibular joint syndrome [Unknown]
  - Dental plaque [Unknown]
  - Tooth fracture [Unknown]
  - Bruxism [Unknown]
  - Dental caries [Unknown]
  - Bone loss [Unknown]
  - Traumatic occlusion [Unknown]
  - Gingival recession [Unknown]
  - Periodontal disease [Unknown]
  - Nasopharyngitis [Unknown]
  - Chest pain [Unknown]
  - Bronchitis [Unknown]
  - Anaemia [Unknown]
